FAERS Safety Report 5671093-9 (Version None)
Quarter: 2008Q1

REPORT INFORMATION
  Report Type: 
  Country: None (occurrence: None)
  Receive Date: 20080318
  Receipt Date: 20080311
  Transmission Date: 20080703
  Serious: Yes (Other)
  Sender: FDA-Public Use
  Company Number: US-ELI_LILLY_AND_COMPANY-US200803002340

PATIENT
  Age: 42 Year
  Sex: Male

DRUGS (2)
  1. BYETTA [Suspect]
     Route: 058
     Dates: start: 20071201
  2. BYETTA [Suspect]
     Dosage: 10 UG, 2/D
     Route: 058
     Dates: end: 20080310

REACTIONS (1)
  - PANCREATITIS [None]
